FAERS Safety Report 13655783 (Version 1)
Quarter: 2017Q2

REPORT INFORMATION
  Report Type: Spontaneous
  Country: US (occurrence: US)
  Receive Date: 20170615
  Receipt Date: 20170615
  Transmission Date: 20170830
  Serious: No
  Sender: FDA-Public Use
  Company Number: US-GLAXOSMITHKLINE-US2017089331

PATIENT
  Age: 50 Year
  Sex: Female

DRUGS (2)
  1. TYLENOL EXTRA STRENGTH [Suspect]
     Active Substance: ACETAMINOPHEN
     Indication: PRODUCT USED FOR UNKNOWN INDICATION
     Dosage: UNK
  2. FLONASE [Suspect]
     Active Substance: FLUTICASONE PROPIONATE
     Indication: VIRAL UPPER RESPIRATORY TRACT INFECTION
     Dosage: UNK, 2-3 SQIURTS
     Dates: end: 20170608

REACTIONS (7)
  - Condition aggravated [Not Recovered/Not Resolved]
  - Drug effective for unapproved indication [Unknown]
  - Product use in unapproved indication [Unknown]
  - Sinus headache [Not Recovered/Not Resolved]
  - Overdose [Unknown]
  - Vomiting [Not Recovered/Not Resolved]
  - Feeling abnormal [Unknown]
